FAERS Safety Report 9722182 (Version 1)
Quarter: 2013Q4

REPORT INFORMATION
  Report Type: Spontaneous
  Country: US (occurrence: US)
  Receive Date: 20131202
  Receipt Date: 20131202
  Transmission Date: 20140711
  Serious: Yes (Death, Other)
  Sender: FDA-Public Use
  Company Number: US-INDICUS PHARMA-000210

PATIENT
  Age: 61 Year
  Sex: Female

DRUGS (1)
  1. METFORMIN HYDROCHLORIDE [Suspect]
     Dosage: 200 METFORMIN TABLETS INGESTED
     Route: 048

REACTIONS (5)
  - Completed suicide [Fatal]
  - Exposure via ingestion [Fatal]
  - Respiratory failure [Unknown]
  - Metabolic acidosis [Unknown]
  - Hypotension [Unknown]
